FAERS Safety Report 16212001 (Version 2)
Quarter: 2019Q3

REPORT INFORMATION
  Report Type: Spontaneous
  Country: US (occurrence: US)
  Receive Date: 20190418
  Receipt Date: 20190715
  Transmission Date: 20191004
  Serious: Yes (Hospitalization)
  Sender: FDA-Public Use
  Company Number: US-STEMLINE THERAPEUTICS, INC.-2019ST000011

PATIENT
  Age: 78 Year
  Sex: Male
  Weight: 109.41 kg

DRUGS (8)
  1. ELZONRIS [Suspect]
     Active Substance: TAGRAXOFUSP-ERZS
     Route: 042
     Dates: start: 20190327, end: 20190401
  2. ELZONRIS [Suspect]
     Active Substance: TAGRAXOFUSP-ERZS
     Route: 042
  3. ELZONRIS [Suspect]
     Active Substance: TAGRAXOFUSP-ERZS
     Route: 042
     Dates: start: 20190416, end: 20190422
  4. ELZONRIS [Suspect]
     Active Substance: TAGRAXOFUSP-ERZS
     Dosage: 3 CYCLE
     Route: 042
     Dates: start: 20190414, end: 20190421
  5. URSODIOL. [Concomitant]
     Active Substance: URSODIOL
     Indication: HEPATIC ENZYME INCREASED
     Route: 065
     Dates: start: 20190309
  6. ELZONRIS [Suspect]
     Active Substance: TAGRAXOFUSP-ERZS
     Indication: BLASTIC PLASMACYTOID DENDRITIC CELL NEOPLASIA
     Route: 042
     Dates: start: 20190305, end: 20190311
  7. ELZONRIS [Suspect]
     Active Substance: TAGRAXOFUSP-ERZS
     Dosage: DAILY TIMES FIVE DAYS
     Route: 042
     Dates: start: 20190327, end: 20190331
  8. ELZONRIS [Suspect]
     Active Substance: TAGRAXOFUSP-ERZS
     Indication: BLASTIC PLASMACYTOID DENDRITIC CELL NEOPLASIA
     Dosage: 12 TO 15 MINUTES
     Route: 042
     Dates: start: 20190305, end: 20190308

REACTIONS (7)
  - Dyspnoea [Recovered/Resolved]
  - Capillary leak syndrome [Recovering/Resolving]
  - Platelet count decreased [Recovered/Resolved]
  - Skin lesion [Not Recovered/Not Resolved]
  - Hepatic enzyme increased [Unknown]
  - Deep vein thrombosis [Not Recovered/Not Resolved]
  - Lymphadenopathy [Unknown]

NARRATIVE: CASE EVENT DATE: 20190309
